FAERS Safety Report 21176720 (Version 6)
Quarter: 2023Q1

REPORT INFORMATION
  Report Type: Spontaneous
  Country: CA (occurrence: CA)
  Receive Date: 20220805
  Receipt Date: 20230118
  Transmission Date: 20230418
  Serious: Yes (Hospitalization)
  Sender: FDA-Public Use
  Company Number: CA-CELLTRION INC.-2022CA005250

PATIENT

DRUGS (5)
  1. INFLECTRA [Suspect]
     Active Substance: INFLIXIMAB-DYYB
     Indication: Hidradenitis
     Dosage: 400 MG, 0, 2 AND 6 THEN Q 8 WEEKS
     Route: 042
     Dates: start: 20220418, end: 20221130
  2. INFLECTRA [Suspect]
     Active Substance: INFLIXIMAB-DYYB
     Dosage: 400 MG, AT WEEK 0, 2 AND 6 THEN Q 8 WEEKS
     Route: 042
     Dates: start: 20220530
  3. INFLECTRA [Suspect]
     Active Substance: INFLIXIMAB-DYYB
     Dosage: 400 MG, AT WEEK 0, 2 AND 6 THEN Q 8 WEEKS
     Route: 042
     Dates: start: 20220810
  4. INFLECTRA [Suspect]
     Active Substance: INFLIXIMAB-DYYB
     Dosage: 400 MG, EVERY 6 WEEKS
     Route: 042
     Dates: start: 20230109
  5. ERTAPENEM [Concomitant]
     Active Substance: ERTAPENEM
     Dosage: UNK

REACTIONS (8)
  - Bacterial infection [Unknown]
  - Therapeutic response shortened [Unknown]
  - Off label use [Unknown]
  - Off label use [Unknown]
  - Condition aggravated [Unknown]
  - Purulent discharge [Not Recovered/Not Resolved]
  - Pain [Unknown]
  - Euphoric mood [Not Recovered/Not Resolved]

NARRATIVE: CASE EVENT DATE: 20220101
